FAERS Safety Report 6374031-9 (Version None)
Quarter: 2009Q3

REPORT INFORMATION
  Report Type: 
  Country: None (occurrence: None)
  Receive Date: 20090924
  Receipt Date: 20090710
  Transmission Date: 20100115
  Serious: Yes (Other)
  Sender: FDA-Public Use
  Company Number: US-ASTRAZENECA-2009UW19372

PATIENT
  Sex: Female
  Weight: 62.6 kg

DRUGS (2)
  1. SEROQUEL [Suspect]
     Route: 048
  2. ABILIFY [Concomitant]

REACTIONS (2)
  - DYSKINESIA [None]
  - MOVEMENT DISORDER [None]
